FAERS Safety Report 9343598 (Version 1)
Quarter: 2013Q2

REPORT INFORMATION
  Report Type: Spontaneous
  Country: DE (occurrence: DE)
  Receive Date: 20130612
  Receipt Date: 20130612
  Transmission Date: 20140414
  Serious: Yes (Congenital Anomaly)
  Sender: FDA-Public Use
  Company Number: DE-ASTRAZENECA-2013SE41178

PATIENT
  Age: 2 Week
  Sex: 0

DRUGS (3)
  1. SEROQUEL [Suspect]
     Indication: SCHIZOPHRENIA, PARANOID TYPE
     Dosage: 600 MG DAILY UNTIL GESTATION WEEK 38
     Route: 064
  2. SEROQUEL [Suspect]
     Indication: SCHIZOPHRENIA, PARANOID TYPE
     Dosage: FROM GESTATION WEEK 38, 500 MG DAILY
     Route: 064
  3. FOLIC ACID [Concomitant]
     Indication: PROPHYLAXIS OF NEURAL TUBE DEFECT
     Dosage: 7-12 GESTATIONAL WEEK
     Route: 064

REACTIONS (1)
  - Pyloric stenosis [Recovered/Resolved with Sequelae]
